FAERS Safety Report 14775622 (Version 2)
Quarter: 2018Q3

REPORT INFORMATION
  Report Type: Report from Study
  Country: US (occurrence: US)
  Receive Date: 20180418
  Receipt Date: 20180704
  Transmission Date: 20181010
  Serious: Yes (Other)
  Sender: FDA-Public Use
  Company Number: US-JNJFOC-20180419962

PATIENT
  Age: 57 Year
  Sex: Male

DRUGS (8)
  1. OXYCODONE [Concomitant]
     Active Substance: OXYCODONE
  2. NEURONTIN [Concomitant]
     Active Substance: GABAPENTIN
  3. REMERON [Concomitant]
     Active Substance: MIRTAZAPINE
  4. TRULICITY [Concomitant]
     Active Substance: DULAGLUTIDE
  5. IMBRUVICA [Suspect]
     Active Substance: IBRUTINIB
     Indication: CHRONIC LYMPHOCYTIC LEUKAEMIA
     Route: 048
     Dates: start: 20180328
  6. ALLOPURINOL. [Concomitant]
     Active Substance: ALLOPURINOL
  7. TORSEMIDE. [Concomitant]
     Active Substance: TORSEMIDE
  8. LISINOPRIL. [Concomitant]
     Active Substance: LISINOPRIL

REACTIONS (4)
  - Asthenia [Unknown]
  - Fatigue [Unknown]
  - Haemoglobin decreased [Recovering/Resolving]
  - Dyspnoea [Unknown]

NARRATIVE: CASE EVENT DATE: 20180416
